FAERS Safety Report 9728755 (Version 1)
Quarter: 2013Q4

REPORT INFORMATION
  Report Type: Spontaneous
  Country: BR (occurrence: BR)
  Receive Date: 20131204
  Receipt Date: 20131204
  Transmission Date: 20140711
  Serious: Yes (Hospitalization, Other)
  Sender: FDA-Public Use
  Company Number: BR-ABBVIE-13P-020-1173938-00

PATIENT
  Age: 3 Month
  Sex: Male
  Weight: 12 kg

DRUGS (5)
  1. KALETRA [Suspect]
     Indication: ACQUIRED IMMUNODEFICIENCY SYNDROME
     Dosage: ONCE AT NIGHT
     Route: 048
     Dates: start: 201112
  2. KALETRA [Suspect]
     Dosage: ONCE AT NIGHT
     Route: 048
     Dates: start: 201206
  3. AZT [Suspect]
     Indication: PRODUCT USED FOR UNKNOWN INDICATION
  4. STAVUDINE [Concomitant]
     Indication: ACQUIRED IMMUNODEFICIENCY SYNDROME
     Dosage: FORM OF ADMINISTRATION: LIQUID
     Route: 048
  5. NORIPURUM [Concomitant]
     Indication: ANAEMIA
     Route: 048

REACTIONS (8)
  - Medical device complication [Recovered/Resolved]
  - Pneumonia [Recovered/Resolved]
  - Opportunistic infection [Recovered/Resolved]
  - Ocular hyperaemia [Recovered/Resolved]
  - Anaemia [Not Recovered/Not Resolved]
  - Asthenia [Recovered/Resolved]
  - Somnolence [Recovered/Resolved]
  - Feeding disorder [Recovered/Resolved]
